FAERS Safety Report 16913347 (Version 1)
Quarter: 2019Q4

REPORT INFORMATION
  Report Type: Spontaneous
  Country: GB (occurrence: GB)
  Receive Date: 20191014
  Receipt Date: 20191014
  Transmission Date: 20200122
  Serious: Yes (Hospitalization)
  Sender: FDA-Public Use
  Company Number: GB-ACCORD-157313

PATIENT
  Age: 28 Year
  Sex: Female
  Weight: 80 kg

DRUGS (7)
  1. VENTOLIN [Concomitant]
     Active Substance: ALBUTEROL SULFATE
  2. TOPIRAMATE. [Suspect]
     Active Substance: TOPIRAMATE
     Indication: VESTIBULAR MIGRAINE
  3. FROVATRIPTAN. [Concomitant]
     Active Substance: FROVATRIPTAN
  4. TOPIRAMATE. [Suspect]
     Active Substance: TOPIRAMATE
     Indication: VESTIBULAR MIGRAINE
     Route: 048
     Dates: start: 20170404
  5. SERTRALINE [Concomitant]
     Active Substance: SERTRALINE HYDROCHLORIDE
  6. PARACETAMOL [Concomitant]
     Active Substance: ACETAMINOPHEN
  7. SALBUTAMOL [Concomitant]
     Active Substance: ALBUTEROL

REACTIONS (5)
  - Seizure [Recovered/Resolved with Sequelae]
  - Asthenia [Recovering/Resolving]
  - Fatigue [Recovering/Resolving]
  - Heart rate irregular [Unknown]
  - Loss of consciousness [Recovering/Resolving]

NARRATIVE: CASE EVENT DATE: 20190709
